FAERS Safety Report 9814853 (Version 1)
Quarter: 2014Q1

REPORT INFORMATION
  Report Type: Spontaneous
  Country: US (occurrence: US)
  Receive Date: 20140113
  Receipt Date: 20140113
  Transmission Date: 20141002
  Serious: Yes (Other)
  Sender: FDA-Public Use
  Company Number: US-GLAXOSMITHKLINE-A1056384A

PATIENT
  Age: 37 Year
  Sex: Male

DRUGS (1)
  1. PROMACTA [Suspect]
     Indication: IMMUNE THROMBOCYTOPENIC PURPURA
     Dosage: 75MG UNKNOWN
     Dates: start: 20100519

REACTIONS (1)
  - Splenectomy [Unknown]
